FAERS Safety Report 6595844-4 (Version None)
Quarter: 2010Q1

REPORT INFORMATION
  Report Type: 
  Country: None (occurrence: None)
  Receive Date: 20100219
  Receipt Date: 20100219
  Transmission Date: 20100710
  Serious: Yes (Other)
  Sender: FDA-Public Use
  Company Number: None

PATIENT
  Age: 76 Year
  Sex: Female
  Weight: 63.9572 kg

DRUGS (1)
  1. CLINDAMYCIN [Suspect]
     Indication: TOOTH INFECTION
     Dosage: 300MG 3X DAY/7 DAYS
     Dates: start: 20090929, end: 20091005

REACTIONS (3)
  - CLOSTRIDIAL INFECTION [None]
  - GASTROINTESTINAL DISORDER [None]
  - WEIGHT DECREASED [None]
